FAERS Safety Report 8434802-1 (Version None)
Quarter: 2012Q2

REPORT INFORMATION
  Report Type: 
  Country: None (occurrence: None)
  Receive Date: 20120614
  Receipt Date: 20120604
  Transmission Date: 20120825
  Serious: Yes (Other)
  Sender: FDA-Public Use
  Company Number: JP-JNJFOC-20120605666

PATIENT

DRUGS (6)
  1. RITUXIMAB [Suspect]
     Indication: EXTRANODAL MARGINAL ZONE B-CELL LYMPHOMA (MALT TYPE)
     Route: 065
  2. CYCLOPHOSPHAMIDE [Suspect]
     Indication: EXTRANODAL MARGINAL ZONE B-CELL LYMPHOMA (MALT TYPE)
     Dosage: DAY 1
     Route: 065
  3. PREDNISONE TAB [Suspect]
     Indication: EXTRANODAL MARGINAL ZONE B-CELL LYMPHOMA (MALT TYPE)
     Dosage: 100 MG/BODY ON DAY 1-5
     Route: 065
  4. RADIOTHERAPY [Suspect]
     Indication: EXTRANODAL MARGINAL ZONE B-CELL LYMPHOMA (MALT TYPE)
     Dosage: 30 GY/20 DOSES
     Route: 065
  5. DOXORUBICIN HYDROCHLORIDE [Suspect]
     Indication: EXTRANODAL MARGINAL ZONE B-CELL LYMPHOMA (MALT TYPE)
     Dosage: DAY 1
     Route: 042
  6. VINCRISTINE [Suspect]
     Indication: EXTRANODAL MARGINAL ZONE B-CELL LYMPHOMA (MALT TYPE)
     Dosage: DAY 1
     Route: 065

REACTIONS (1)
  - CHRONIC MYELOMONOCYTIC LEUKAEMIA [None]
